FAERS Safety Report 10202082 (Version 2)
Quarter: 2014Q2

REPORT INFORMATION
  Report Type: Spontaneous
  Country: US (occurrence: US)
  Receive Date: 20140528
  Receipt Date: 20140528
  Transmission Date: 20141212
  Serious: No
  Sender: FDA-Public Use
  Company Number: US-PFIZER INC-2013314150

PATIENT
  Age: 66 Year
  Sex: Female
  Weight: 88.4 kg

DRUGS (2)
  1. LEVOXYL [Suspect]
     Indication: HYPOTHYROIDISM
     Dosage: 37.5 UG TOTAL, (25UG IN THE MORNING AND 12.5UG IN THE EVENING) 2X/DAY
     Route: 048
  2. CHLORTHALIDONE [Concomitant]
     Indication: HYPERTENSION
     Dosage: 6.25 MG, DAILY

REACTIONS (2)
  - Somnolence [Recovered/Resolved]
  - Fatigue [Recovered/Resolved]
